FAERS Safety Report 6806287-X (Version None)
Quarter: 2010Q2

REPORT INFORMATION
  Report Type: 
  Country: None (occurrence: None)
  Receive Date: 20100629
  Receipt Date: 20080110
  Transmission Date: 20101027
  Serious: No
  Sender: FDA-Public Use
  Company Number: US-PFIZER INC-2008003538

PATIENT
  Sex: Female

DRUGS (4)
  1. XANAX [Suspect]
  2. AVALIDE [Suspect]
  3. PRANDIN [Suspect]
  4. LOPRESSOR [Suspect]

REACTIONS (3)
  - DIZZINESS [None]
  - NERVOUSNESS [None]
  - SOMNOLENCE [None]
